FAERS Safety Report 5622504-6 (Version None)
Quarter: 2008Q1

REPORT INFORMATION
  Report Type: 
  Country: None (occurrence: None)
  Receive Date: 20080211
  Receipt Date: 20080205
  Transmission Date: 20080703
  Serious: Yes (Hospitalization)
  Sender: FDA-Public Use
  Company Number: US-MERCK-0712USA03913

PATIENT
  Age: 57 Year
  Sex: Female
  Weight: 77 kg

DRUGS (4)
  1. JANUVIA [Suspect]
     Indication: TYPE 2 DIABETES MELLITUS
     Route: 048
     Dates: end: 20070201
  2. AVANDIA [Concomitant]
     Route: 048
  3. LEVEMIR [Concomitant]
     Route: 058
  4. [THERAPY UNSPECIFIED] [Concomitant]
     Route: 065

REACTIONS (2)
  - NAUSEA [None]
  - VOMITING [None]
